FAERS Safety Report 11840562 (Version 2)
Quarter: 2016Q1

REPORT INFORMATION
  Report Type: Spontaneous
  Country: US (occurrence: US)
  Receive Date: 20151216
  Receipt Date: 20160118
  Transmission Date: 20160525
  Serious: Yes (Hospitalization, Other)
  Sender: FDA-Public Use
  Company Number: US-BAYER-2015-487753

PATIENT
  Age: 37 Year
  Sex: Female
  Weight: 122.45 kg

DRUGS (3)
  1. MIRENA [Suspect]
     Active Substance: LEVONORGESTREL
     Indication: CONTRACEPTION
     Dosage: 20 MCG/24HR, CONT
     Route: 015
     Dates: start: 20080530, end: 20090409
  2. LEXAPRO [Concomitant]
     Active Substance: ESCITALOPRAM OXALATE
  3. NORVASC [Concomitant]
     Active Substance: AMLODIPINE BESYLATE

REACTIONS (11)
  - Anxiety [None]
  - Device use error [None]
  - Device difficult to use [None]
  - Pelvic adhesions [None]
  - Complication of device removal [None]
  - Depression [None]
  - Uterine perforation [None]
  - Device breakage [None]
  - Pain [None]
  - Genital haemorrhage [None]
  - Post procedural discomfort [None]

NARRATIVE: CASE EVENT DATE: 2009
